FAERS Safety Report 11285047 (Version 2)
Quarter: 2015Q3

REPORT INFORMATION
  Report Type: Spontaneous
  Country: US (occurrence: US)
  Receive Date: 20150720
  Receipt Date: 20150911
  Transmission Date: 20151125
  Serious: Yes (Other)
  Sender: FDA-Public Use
  Company Number: US-PFIZER INC-2015237756

PATIENT
  Age: 65 Year
  Sex: Female
  Weight: 68.27 kg

DRUGS (2)
  1. MEDROL [Suspect]
     Active Substance: METHYLPREDNISOLONE
     Indication: RHEUMATOID ARTHRITIS
     Dosage: UNK
     Dates: start: 2003
  2. METHYLPREDNISOLONE. [Suspect]
     Active Substance: METHYLPREDNISOLONE
     Dosage: 4 MG, UNK

REACTIONS (4)
  - Condition aggravated [Recovered/Resolved]
  - Drug ineffective [Recovered/Resolved]
  - Fall [Unknown]
  - Rheumatoid arthritis [Recovered/Resolved]
